FAERS Safety Report 8917663 (Version 2)
Quarter: 2012Q4

REPORT INFORMATION
  Report Type: 
  Country: US (occurrence: US)
  Receive Date: 20121119
  Receipt Date: 20121203
  Transmission Date: 20130627
  Serious: No
  Sender: FDA-Public Use
  Company Number: US-009507513-1211USA003236

PATIENT
  Sex: Female

DRUGS (3)
  1. CLARITIN-D 24 HOUR [Suspect]
     Indication: SINUSITIS
     Dosage: 10 mg, qd
     Route: 048
  2. CLARITIN-D 24 HOUR [Suspect]
     Indication: UPPER-AIRWAY COUGH SYNDROME
  3. CLARITIN-D 24 HOUR [Suspect]
     Indication: MEDICAL OBSERVATION

REACTIONS (1)
  - Insomnia [Recovered/Resolved]
